FAERS Safety Report 10270739 (Version 2)
Quarter: 2014Q3

REPORT INFORMATION
  Report Type: Spontaneous
  Country: AU (occurrence: None)
  Receive Date: 20140626
  Receipt Date: 20140723
  Transmission Date: 20150326
  Serious: Yes (Hospitalization, Other)
  Sender: FDA-Public Use
  Company Number: 2014AP002855

PATIENT
  Sex: Female

DRUGS (2)
  1. CLARITHROMYCIN (CLARITHROMYCIN) TABLET, 250MG [Suspect]
     Active Substance: CLARITHROMYCIN
     Indication: PERTUSSIS
     Dosage: 1 UNK, SINGLE
     Route: 048
     Dates: start: 20140314, end: 20140314
  2. CLARITHROMYCIN (CLARITHROMYCIN) TABLET, 250MG [Suspect]
     Active Substance: CLARITHROMYCIN
     Indication: INFECTION
     Dosage: 1 UNK, SINGLE
     Route: 048
     Dates: start: 20140314, end: 20140314

REACTIONS (2)
  - Malaise [None]
  - Generalised tonic-clonic seizure [None]

NARRATIVE: CASE EVENT DATE: 20140314
